FAERS Safety Report 14114560 (Version 6)
Quarter: 2021Q4

REPORT INFORMATION
  Report Type: Spontaneous
  Country: US (occurrence: US)
  Receive Date: 20171023
  Receipt Date: 20211213
  Transmission Date: 20220303
  Serious: Yes (Other)
  Sender: FDA-Public Use
  Company Number: US-PFIZER INC-2017118785

PATIENT
  Age: 70 Year
  Sex: Female
  Weight: 82 kg

DRUGS (15)
  1. XELJANZ XR [Suspect]
     Active Substance: TOFACITINIB CITRATE
     Indication: Rheumatoid arthritis
     Dosage: 11 MG, 1X/DAY
     Route: 048
     Dates: end: 201801
  2. XELJANZ XR [Suspect]
     Active Substance: TOFACITINIB CITRATE
     Dosage: 11 MG, UNK
     Dates: start: 201802, end: 201803
  3. METOPROLOL SUCCINATE [Concomitant]
     Active Substance: METOPROLOL SUCCINATE
     Indication: Hypertension
     Dosage: 50 MG, 2X/DAY
     Route: 048
     Dates: start: 2012
  4. METFORMIN [Concomitant]
     Active Substance: METFORMIN HYDROCHLORIDE
     Indication: Diabetes mellitus
     Dosage: 1000 MG, 2X/DAY
     Route: 048
     Dates: start: 2003
  5. LISINOPRIL [Concomitant]
     Active Substance: LISINOPRIL
     Indication: Prophylaxis
     Dosage: 40 MG, DAILY
     Route: 048
     Dates: start: 2003
  6. ASPIRIN [Concomitant]
     Active Substance: ASPIRIN
     Indication: Thrombosis prophylaxis
     Dosage: 81 MG, DAILY
     Route: 048
     Dates: start: 2003
  7. FOLIC ACID [Concomitant]
     Active Substance: FOLIC ACID
     Indication: Neoplasm prophylaxis
     Dosage: 1 MG, DAILY
     Route: 048
     Dates: start: 2003
  8. GABAPENTIN [Concomitant]
     Active Substance: GABAPENTIN
     Indication: Pain
     Dosage: 300 MG, 3X/DAY
     Route: 048
     Dates: start: 2003
  9. TRAMADOL [Concomitant]
     Active Substance: TRAMADOL
     Indication: Pain
     Dosage: 50 MG, 2X/DAY (CVS PHARMACY VIAL, DIDN^T ALWAYS TAKE)
     Route: 048
     Dates: start: 2003
  10. METHOTREXATE [Concomitant]
     Active Substance: METHOTREXATE
     Indication: Rheumatoid arthritis
     Dosage: 12 MG, WEEKLY
     Route: 048
     Dates: start: 2013
  11. NOVOLOG [Concomitant]
     Active Substance: INSULIN ASPART
     Indication: Diabetes mellitus
     Dosage: 14 UNITS AT BREAKFAST, 12 UNITS AT LUNCH, AND 10 UNITS AT DINNER, WITH SLIDING SCALE
     Dates: start: 2003
  12. TRESIBA [Concomitant]
     Active Substance: INSULIN DEGLUDEC
     Indication: Diabetes mellitus
     Dosage: 30 UNITS AT BED TIME WITH SLIDING SCALE
     Route: 058
     Dates: start: 2016
  13. IRON [Concomitant]
     Active Substance: IRON
     Indication: Anaemia
     Dosage: 325 MG, DAILY
     Route: 048
     Dates: start: 2014
  14. OMEPRAZOLE [Concomitant]
     Active Substance: OMEPRAZOLE
     Indication: Gastrooesophageal reflux disease
     Dosage: 40 MG, DAILY
     Route: 048
     Dates: start: 201803
  15. PROBIOTICS NOS [Concomitant]
     Active Substance: PROBIOTICS NOS
     Indication: Irritable bowel syndrome
     Dosage: 1 DF, 1X/DAY (IN THE EVENING)
     Route: 048
     Dates: start: 201802

REACTIONS (6)
  - Influenza [Recovered/Resolved with Sequelae]
  - Sinusitis [Recovered/Resolved with Sequelae]
  - Bronchitis [Recovered/Resolved with Sequelae]
  - Cough [Recovering/Resolving]
  - Pain in extremity [Unknown]
  - Pain [Unknown]

NARRATIVE: CASE EVENT DATE: 20180101
